FAERS Safety Report 17128973 (Version 1)
Quarter: 2019Q4

REPORT INFORMATION
  Report Type: Spontaneous
  Country: US (occurrence: US)
  Receive Date: 20191207
  Receipt Date: 20191207
  Transmission Date: 20200122
  Serious: No
  Sender: FDA-Public Use
  Company Number: None

PATIENT
  Age: 66 Year
  Sex: Female
  Weight: 52.2 kg

DRUGS (18)
  1. AJOVY [Suspect]
     Active Substance: FREMANEZUMAB-VFRM
     Indication: MIGRAINE
     Dosage: ?          OTHER FREQUENCY:ONCE MONTHLY;OTHER ROUTE:INJECTION TO ABDOMINAL FAT?
     Dates: start: 20190926, end: 20191101
  2. VERAPAMIL ER [Concomitant]
     Active Substance: VERAPAMIL HYDROCHLORIDE
  3. MSM [Concomitant]
     Active Substance: DIMETHYL SULFONE
  4. ZANTAC [Concomitant]
     Active Substance: RANITIDINE HYDROCHLORIDE
  5. FIORINAL [Concomitant]
     Active Substance: ASPIRIN\BUTALBITAL\CAFFEINE
  6. PEPCID [Concomitant]
     Active Substance: FAMOTIDINE
  7. PETADOLEX [Concomitant]
     Active Substance: HERBALS
  8. VIVISCAL [Concomitant]
  9. COENZYME Q10 [Concomitant]
     Active Substance: UBIDECARENONE
  10. MAGNESIUM [Concomitant]
     Active Substance: MAGNESIUM
  11. VITAMIN D [Concomitant]
     Active Substance: VITAMIN D NOS
  12. BIOTIN [Concomitant]
     Active Substance: BIOTIN
  13. TIMOLOL. [Concomitant]
     Active Substance: TIMOLOL
  14. FIORICET WITH CODEINE [Concomitant]
     Active Substance: ACETAMINOPHEN\BUTALBITAL\CAFFEINE\CODEINE PHOSPHATE
  15. VITAMIN B2 [Concomitant]
     Active Substance: RIBOFLAVIN
  16. RIZATRIPTAN. [Concomitant]
     Active Substance: RIZATRIPTAN
  17. TYLENOL WITH CODEINE [Concomitant]
     Active Substance: ACETAMINOPHEN\CODEINE PHOSPHATE
  18. L-5-MTHF [Concomitant]

REACTIONS (6)
  - Muscle spasms [None]
  - Fatigue [None]
  - Abdominal pain [None]
  - Abdominal distension [None]
  - Dyspepsia [None]
  - Hepatic enzyme increased [None]

NARRATIVE: CASE EVENT DATE: 20191102
